FAERS Safety Report 7421836-9 (Version None)
Quarter: 2011Q2

REPORT INFORMATION
  Report Type: 
  Country: None (occurrence: None)
  Receive Date: 20110418
  Receipt Date: 20110411
  Transmission Date: 20111010
  Serious: Yes (Other)
  Sender: FDA-Public Use
  Company Number: BR-SANOFI-AVENTIS-2011SA022446

PATIENT
  Sex: Male

DRUGS (1)
  1. AMARYL [Suspect]
     Route: 065

REACTIONS (4)
  - BLINDNESS [None]
  - NEOPLASM MALIGNANT [None]
  - DIABETES MELLITUS [None]
  - NERVOUSNESS [None]
